FAERS Safety Report 10480024 (Version 26)
Quarter: 2020Q3

REPORT INFORMATION
  Report Type: Other
  Country: CA (occurrence: CA)
  Receive Date: 20140929
  Receipt Date: 20200907
  Transmission Date: 20201102
  Serious: Yes (Other)
  Sender: FDA-Public Use
  Company Number: CA-ROCHE-1332993

PATIENT
  Age: 72 Year
  Sex: Female
  Weight: 102.1 kg

DRUGS (33)
  1. CRESTOR [Concomitant]
     Active Substance: ROSUVASTATIN CALCIUM
  2. CALCIUM [Concomitant]
     Active Substance: CALCIUM
  3. RITUXAN [Suspect]
     Active Substance: RITUXIMAB
     Indication: MIXED CONNECTIVE TISSUE DISEASE
  4. CELLCEPT [Suspect]
     Active Substance: MYCOPHENOLATE MOFETIL\MYCOPHENOLATE MOFETIL HYDROCHLORIDE
     Indication: RHEUMATOID ARTHRITIS
     Route: 065
     Dates: start: 2012, end: 201703
  5. HYDROXYZINE [Concomitant]
     Active Substance: HYDROXYZINE HYDROCHLORIDE
  6. SYNTHROID [Concomitant]
     Active Substance: LEVOTHYROXINE SODIUM
  7. OMEPRAZOLE. [Concomitant]
     Active Substance: OMEPRAZOLE
  8. PLAQUENIL [Concomitant]
     Active Substance: HYDROXYCHLOROQUINE SULFATE
     Indication: RHEUMATOID ARTHRITIS
     Route: 048
     Dates: start: 2001
  9. JANUMET [Concomitant]
     Active Substance: METFORMIN HYDROCHLORIDE\SITAGLIPTIN PHOSPHATE
  10. TYLENOL [Concomitant]
     Active Substance: ACETAMINOPHEN
  11. VITAMIN B6 [Concomitant]
     Active Substance: PYRIDOXINE HYDROCHLORIDE
  12. RITUXAN [Suspect]
     Active Substance: RITUXIMAB
     Indication: SYSTEMIC LUPUS ERYTHEMATOSUS
  13. PREDNISONE. [Suspect]
     Active Substance: PREDNISONE
     Indication: RHEUMATOID ARTHRITIS
     Route: 065
  14. METFORMIN [Concomitant]
     Active Substance: METFORMIN HYDROCHLORIDE
     Route: 048
  15. DEMEROL [Concomitant]
     Active Substance: MEPERIDINE HYDROCHLORIDE
  16. PREDNISONE. [Suspect]
     Active Substance: PREDNISONE
     Indication: VASCULITIS
  17. RITUXAN [Suspect]
     Active Substance: RITUXIMAB
     Indication: POLYMYOSITIS
     Dosage: TREATMENT DETAILS AS PRE TREATING PHYSICIAN
     Route: 042
     Dates: start: 20140122
  18. SULFASALAZINE. [Suspect]
     Active Substance: SULFASALAZINE
     Indication: RHEUMATOID ARTHRITIS
     Route: 065
  19. SULFASALAZINE. [Suspect]
     Active Substance: SULFASALAZINE
     Route: 065
     Dates: start: 2012
  20. ACETAMINOPHEN. [Concomitant]
     Active Substance: ACETAMINOPHEN
     Indication: PREMEDICATION
     Route: 048
     Dates: start: 20130717
  21. DOMPERIDONE [Concomitant]
     Active Substance: DOMPERIDONE
  22. METHYLPREDNISOLONE. [Concomitant]
     Active Substance: METHYLPREDNISOLONE
     Indication: PREMEDICATION
     Route: 042
     Dates: start: 20130717
  23. MELOXICAM. [Concomitant]
     Active Substance: MELOXICAM
  24. DOCUSATE SODIUM. [Concomitant]
     Active Substance: DOCUSATE SODIUM
  25. FOLIC ACID. [Concomitant]
     Active Substance: FOLIC ACID
  26. PLAQUENIL [Concomitant]
     Active Substance: HYDROXYCHLOROQUINE SULFATE
     Route: 048
     Dates: start: 2001
  27. RITUXAN [Suspect]
     Active Substance: RITUXIMAB
     Indication: RHEUMATOID ARTHRITIS
     Dosage: LAST RITUXIMAB RECEIVED: 31/JUL/2013.?MOST RECENT DOSE ON 05/FEB/2014?LAST DOSE 07/JUL/2015.?LAST DO
     Route: 042
     Dates: start: 20130717
  28. PREDNISONE. [Suspect]
     Active Substance: PREDNISONE
     Indication: MYOSITIS
     Dosage: TREATMENT DETAILS AS PER TREATING PHYSICIAN
     Route: 048
     Dates: start: 2001
  29. JANUVIA [Concomitant]
     Active Substance: SITAGLIPTIN PHOSPHATE
  30. COVERSYL [Concomitant]
     Active Substance: PERINDOPRIL
  31. ACETYLSALICYLIC ACID [Concomitant]
     Active Substance: ASPIRIN
  32. CELLCEPT [Suspect]
     Active Substance: MYCOPHENOLATE MOFETIL\MYCOPHENOLATE MOFETIL HYDROCHLORIDE
     Indication: MYOSITIS
  33. DIPHENHYDRAMINE. [Concomitant]
     Active Substance: DIPHENHYDRAMINE
     Indication: PREMEDICATION
     Route: 048
     Dates: start: 20130717

REACTIONS (57)
  - Chest pain [Unknown]
  - Immunosuppression [Unknown]
  - Aortic valve stenosis [Not Recovered/Not Resolved]
  - Tooth injury [Unknown]
  - Diarrhoea [Recovered/Resolved]
  - Fatigue [Not Recovered/Not Resolved]
  - Chondrocalcinosis pyrophosphate [Unknown]
  - Middle insomnia [Unknown]
  - Cervical vertebral fracture [Unknown]
  - Arthropod bite [Unknown]
  - Asthma [Unknown]
  - Off label use [Unknown]
  - Nausea [Unknown]
  - Hyperhidrosis [Unknown]
  - Hypertension [Unknown]
  - Arthralgia [Recovering/Resolving]
  - Nasopharyngitis [Unknown]
  - Abdominal pain upper [Unknown]
  - Nausea [Not Recovered/Not Resolved]
  - Vomiting [Unknown]
  - Dizziness [Not Recovered/Not Resolved]
  - Oxygen saturation decreased [Unknown]
  - Campylobacter infection [Unknown]
  - Dry eye [Unknown]
  - Infusion related reaction [Recovered/Resolved]
  - Hypoaesthesia [Recovering/Resolving]
  - Dyspnoea [Unknown]
  - Helicobacter infection [Unknown]
  - Systemic lupus erythematosus rash [Recovered/Resolved]
  - Vertigo [Not Recovered/Not Resolved]
  - Intentional product use issue [Unknown]
  - Blood pressure diastolic abnormal [Unknown]
  - Nasal congestion [Not Recovered/Not Resolved]
  - Sleep disorder [Unknown]
  - Cystitis [Unknown]
  - Infected bite [Unknown]
  - Abdominal pain [Not Recovered/Not Resolved]
  - Blood pressure fluctuation [Unknown]
  - Dry mouth [Unknown]
  - Skin tightness [Unknown]
  - Arrhythmia [Unknown]
  - Carpal tunnel syndrome [Unknown]
  - Stoma site erythema [Not Recovered/Not Resolved]
  - Cough [Recovered/Resolved]
  - Drug ineffective [Unknown]
  - Joint swelling [Not Recovered/Not Resolved]
  - Influenza [Recovered/Resolved]
  - Constipation [Unknown]
  - Cushingoid [Unknown]
  - Aortic stenosis [Unknown]
  - Dupuytren^s contracture [Unknown]
  - Infusion related reaction [Recovered/Resolved]
  - Fatigue [Unknown]
  - Back pain [Unknown]
  - Dysphagia [Unknown]
  - Tooth fracture [Unknown]
  - Drug hypersensitivity [Unknown]

NARRATIVE: CASE EVENT DATE: 2013
